FAERS Safety Report 11588339 (Version 1)
Quarter: 2015Q4

REPORT INFORMATION
  Report Type: Spontaneous
  Country: US (occurrence: None)
  Receive Date: 20151001
  Receipt Date: 20151001
  Transmission Date: 20160304
  Serious: No
  Sender: FDA-Public Use
  Company Number: None

PATIENT
  Age: 16 Year
  Sex: Female
  Weight: 47.17 kg

DRUGS (1)
  1. NORETHINDRONE 5 MG BARR [Suspect]
     Active Substance: NORETHINDRONE
     Indication: MENORRHAGIA
     Route: 048
     Dates: start: 20150922, end: 20150930

REACTIONS (4)
  - Product substitution issue [None]
  - Vaginal haemorrhage [None]
  - Abdominal discomfort [None]
  - Product quality issue [None]

NARRATIVE: CASE EVENT DATE: 20150925
